FAERS Safety Report 8513376-0 (Version None)
Quarter: 2012Q3

REPORT INFORMATION
  Report Type: 
  Country: None (occurrence: None)
  Receive Date: 20120717
  Receipt Date: 20120711
  Transmission Date: 20120928
  Serious: Yes (Life-Threatening)
  Sender: FDA-Public Use
  Company Number: DE-AMGEN-DEUSP2012042690

PATIENT
  Age: 34 Year
  Sex: Female
  Weight: 88 kg

DRUGS (4)
  1. NPLATE [Suspect]
     Indication: IDIOPATHIC THROMBOCYTOPENIC PURPURA
     Dosage: 500 MUG, ONE TIME DOSE
     Route: 058
     Dates: start: 20120430, end: 20120430
  2. ARCOXIA [Concomitant]
     Indication: INTERVERTEBRAL DISC PROTRUSION
     Dosage: 90 MG, UNK
     Route: 048
     Dates: start: 20120410, end: 20120503
  3. DEXAMETHASONE [Concomitant]
     Indication: IDIOPATHIC THROMBOCYTOPENIC PURPURA
     Dosage: 40 MG, UNK
     Route: 048
     Dates: start: 20120427, end: 20120429
  4. IMMUNGLOBULIN [Concomitant]
     Indication: IDIOPATHIC THROMBOCYTOPENIC PURPURA
     Dosage: 80 G, UNK
     Route: 042
     Dates: start: 20120423, end: 20120424

REACTIONS (2)
  - SUBARACHNOID HAEMORRHAGE [None]
  - VOMITING [None]
